FAERS Safety Report 4503508-3 (Version None)
Quarter: 2004Q4

REPORT INFORMATION
  Report Type: 
  Country: None (occurrence: None)
  Receive Date: 20041115
  Receipt Date: 20041104
  Transmission Date: 20050328
  Serious: Yes (Other)
  Sender: FDA-Public Use
  Company Number: 200410585BYL

PATIENT
  Age: 52 Year
  Sex: Female
  Weight: 70 kg

DRUGS (1)
  1. ADALAT [Suspect]
     Indication: HYPERTENSION
     Dosage: 20 MG, QD, ORAL; 10 MG, QD, ORAL
     Route: 048
     Dates: start: 20030408

REACTIONS (3)
  - FACE OEDEMA [None]
  - FOOD INTERACTION [None]
  - LARYNGEAL OEDEMA [None]
